FAERS Safety Report 6558299-1 (Version None)
Quarter: 2010Q1

REPORT INFORMATION
  Report Type: 
  Country: None (occurrence: None)
  Receive Date: 20100128
  Receipt Date: 20100128
  Transmission Date: 20100710
  Serious: Yes (Hospitalization)
  Sender: FDA-Public Use
  Company Number: None

PATIENT
  Age: 81 Year
  Sex: Female
  Weight: 83.9154 kg

DRUGS (1)
  1. NATEGLINIDE [Suspect]
     Indication: TYPE 2 DIABETES MELLITUS
     Dosage: 3 TIMES A DAY MOUTH
     Route: 048

REACTIONS (9)
  - BLOOD GLUCOSE INCREASED [None]
  - COUGH [None]
  - DIZZINESS [None]
  - FALL [None]
  - GAIT DISTURBANCE [None]
  - INCREASED UPPER AIRWAY SECRETION [None]
  - NAUSEA [None]
  - PRODUCT SUBSTITUTION ISSUE [None]
  - VOMITING [None]
